FAERS Safety Report 5202247-3 (Version None)
Quarter: 2007Q1

REPORT INFORMATION
  Report Type: 
  Country: None (occurrence: None)
  Receive Date: 20070109
  Receipt Date: 20070108
  Transmission Date: 20070707
  Serious: Yes (Death, Hospitalization)
  Sender: FDA-Public Use
  Company Number: US-GLAXOSMITHKLINE-A0578756A

PATIENT
  Age: 64 Year
  Sex: Male
  Weight: 113.6 kg

DRUGS (3)
  1. ESKALITH [Suspect]
     Indication: BIPOLAR DISORDER
     Dosage: 300MG UNKNOWN
     Route: 048
     Dates: start: 19811007, end: 20030801
  2. TOPROL-XL [Concomitant]
  3. NORVASC [Concomitant]

REACTIONS (37)
  - ACUTE RESPIRATORY FAILURE [None]
  - ANAEMIA [None]
  - ARTERIOVENOUS FISTULA [None]
  - BRADYCARDIA [None]
  - CARDIAC ARREST [None]
  - CARDIAC MURMUR [None]
  - CATHETER RELATED COMPLICATION [None]
  - COAGULOPATHY [None]
  - DIABETES MELLITUS [None]
  - DISSEMINATED INTRAVASCULAR COAGULATION [None]
  - DIZZINESS [None]
  - DRUG LEVEL INCREASED [None]
  - DUODENAL ULCER HAEMORRHAGE [None]
  - DYSPNOEA [None]
  - FATIGUE [None]
  - GASTROINTESTINAL HAEMORRHAGE [None]
  - HAEMODIALYSIS [None]
  - HAEMODYNAMIC INSTABILITY [None]
  - HEPATIC FAILURE [None]
  - HYPERKALAEMIA [None]
  - HYPOTENSION [None]
  - LETHARGY [None]
  - LOSS OF CONSCIOUSNESS [None]
  - MALAISE [None]
  - METABOLIC ACIDOSIS [None]
  - MULTI-ORGAN FAILURE [None]
  - MUSCULAR WEAKNESS [None]
  - ONYCHOMYCOSIS [None]
  - PULMONARY CONGESTION [None]
  - PULMONARY OEDEMA [None]
  - RECTAL HAEMORRHAGE [None]
  - REFUSAL OF TREATMENT BY PATIENT [None]
  - RENAL FAILURE [None]
  - RESPIRATORY DISTRESS [None]
  - SHOCK HAEMORRHAGIC [None]
  - SINUS TACHYCARDIA [None]
  - THROMBOCYTOPENIA [None]
